APPROVED DRUG PRODUCT: PROCAN SR
Active Ingredient: PROCAINAMIDE HYDROCHLORIDE
Strength: 750MG
Dosage Form/Route: TABLET, EXTENDED RELEASE;ORAL
Application: A087510 | Product #001
Applicant: PARKEDALE PHARMACEUTICALS INC
Approved: Apr 1, 1982 | RLD: Yes | RS: No | Type: DISCN